FAERS Safety Report 24103075 (Version 1)
Quarter: 2024Q3

REPORT INFORMATION
  Report Type: Report from Study
  Country: TH (occurrence: None)
  Receive Date: 20240717
  Receipt Date: 20240717
  Transmission Date: 20241017
  Serious: Yes (Hospitalization, Other)
  Sender: ASTRAZENECA
  Company Number: 2020SE53166

PATIENT
  Age: 42 Year
  Sex: Female

DRUGS (1)
  1. LYNPARZA [Suspect]
     Active Substance: OLAPARIB
     Indication: Ovarian cancer
     Route: 048
     Dates: start: 20200304, end: 202003

REACTIONS (4)
  - Abdominal adhesions [Recovering/Resolving]
  - Abdominal pain [Recovering/Resolving]
  - Procedural vomiting [Not Recovered/Not Resolved]
  - Fatigue [Not Recovered/Not Resolved]
